FAERS Safety Report 6315650-5 (Version None)
Quarter: 2009Q3

REPORT INFORMATION
  Report Type: 
  Country: None (occurrence: None)
  Receive Date: 20090818
  Receipt Date: 20090803
  Transmission Date: 20100115
  Serious: Yes (Other)
  Sender: FDA-Public Use
  Company Number: 2008101051

PATIENT
  Sex: Male

DRUGS (9)
  1. FRAGMIN [Suspect]
     Dosage: TRANSPLACENTAL
     Route: 064
     Dates: start: 20080101, end: 20080101
  2. ENOXAPARIN SODIUM [Suspect]
     Dosage: TRANSPLACENTAL
     Route: 064
  3. ESTROFEM (ESTRADIOL, ESTRIOL) [Suspect]
     Dosage: TRANSPLACENTAL
     Route: 064
  4. PROGESTERONE [Suspect]
     Dosage: TRANSPLACENTAL
     Route: 064
  5. FOLIC ACID [Suspect]
     Dosage: TRANSPLACENTAL
     Route: 064
  6. PREGNYL [Suspect]
     Dosage: TRANSPLACENTAL
     Route: 064
  7. PROGESTERONE [Suspect]
     Dosage: TRANSPLACENTAL
     Route: 064
  8. ASCORUTIN (ASCORBIC ACID, RUTOSIDE) [Suspect]
     Dosage: TRANSPLACENTAL
     Route: 064
  9. ACTRAPID HUMAN (INSULIN HUMAN) [Suspect]
     Indication: GESTATIONAL DIABETES
     Dosage: TRANSPLACENTAL
     Route: 064

REACTIONS (3)
  - MATERNAL DRUGS AFFECTING FOETUS [None]
  - RHABDOMYOMA [None]
  - TUBEROUS SCLEROSIS [None]
